FAERS Safety Report 8208477-0 (Version None)
Quarter: 2012Q1

REPORT INFORMATION
  Report Type: 
  Country: None (occurrence: None)
  Receive Date: 20120314
  Receipt Date: 20120301
  Transmission Date: 20120608
  Serious: Yes (Disabling, Other)
  Sender: FDA-Public Use
  Company Number: NL-AMGEN-NLDSP2012004192

PATIENT
  Age: 64 Year
  Sex: Female

DRUGS (10)
  1. METHOTREXATE [Suspect]
     Dosage: UNK
  2. PLAQUENIL [Concomitant]
     Dosage: UNK
  3. ENBREL [Suspect]
     Indication: RHEUMATOID ARTHRITIS
     Dosage: 50 MG, WEEKLY
     Dates: start: 20111116
  4. AMLODIPINE [Concomitant]
     Dosage: UNK
  5. FOLIC ACID [Concomitant]
     Dosage: UNK
  6. ASCAL                              /00002702/ [Concomitant]
     Dosage: UNK
  7. BROMAZEPAM [Concomitant]
     Dosage: UNK
  8. PAROXETINE HCL [Concomitant]
     Dosage: UNK
  9. SIMVASTATIN [Concomitant]
     Dosage: UNK
  10. PANTOPRAZOLE [Concomitant]
     Dosage: UNK

REACTIONS (6)
  - NAUSEA [None]
  - BALANCE DISORDER [None]
  - SYNCOPE [None]
  - DIZZINESS [None]
  - INFLUENZA [None]
  - NASOPHARYNGITIS [None]
